FAERS Safety Report 4753864-6 (Version None)
Quarter: 2005Q3

REPORT INFORMATION
  Report Type: 
  Country: None (occurrence: None)
  Receive Date: 20050826
  Receipt Date: 20050816
  Transmission Date: 20060218
  Serious: Yes (Hospitalization)
  Sender: FDA-Public Use
  Company Number: FR-GLAXOSMITHKLINE-B0390941A

PATIENT
  Age: 72 Year
  Sex: Male

DRUGS (2)
  1. AUGMENTIN '125' [Suspect]
     Indication: INFLUENZA LIKE ILLNESS
     Route: 048
     Dates: start: 20050201
  2. ANTIBIOTIC (UNKNOWN NAME) [Suspect]
     Indication: INFLUENZA LIKE ILLNESS
     Dates: start: 20050201

REACTIONS (5)
  - ANOREXIA [None]
  - APHTHOUS STOMATITIS [None]
  - GASTROINTESTINAL FUNGAL INFECTION [None]
  - PYREXIA [None]
  - WEIGHT DECREASED [None]
